FAERS Safety Report 8615276-4 (Version None)
Quarter: 2012Q3

REPORT INFORMATION
  Report Type: 
  Country: None (occurrence: None)
  Receive Date: 20120823
  Receipt Date: 20120820
  Transmission Date: 20120928
  Serious: No
  Sender: FDA-Public Use
  Company Number: US-PFIZER INC-2012153275

PATIENT
  Age: 60 Year
  Sex: Female
  Weight: 58.05 kg

DRUGS (1)
  1. ESTRING [Suspect]
     Indication: VULVOVAGINAL DRYNESS
     Dosage: UNK
     Route: 067
     Dates: start: 20120601, end: 20120601

REACTIONS (1)
  - VULVOVAGINAL BURNING SENSATION [None]
